FAERS Safety Report 8565650-X (Version None)
Quarter: 2012Q3

REPORT INFORMATION
  Report Type: 
  Country: None (occurrence: None)
  Receive Date: 20120803
  Receipt Date: 20120724
  Transmission Date: 20120928
  Serious: Yes (Hospitalization, Other)
  Sender: FDA-Public Use
  Company Number: CH-ELI_LILLY_AND_COMPANY-CH201207003404

PATIENT
  Age: 56 Year
  Sex: Female
  Weight: 50 kg

DRUGS (2)
  1. HUMULIN N [Suspect]
     Indication: TYPE 1 DIABETES MELLITUS
     Dosage: 20 IU, QD
     Route: 058
     Dates: start: 20120522, end: 20120717
  2. INSULIN [Concomitant]

REACTIONS (5)
  - INJECTION SITE NECROSIS [None]
  - DRUG INEFFECTIVE [None]
  - PRODUCT TAMPERING [None]
  - INJECTION SITE PAIN [None]
  - ERYTHEMA [None]
